FAERS Safety Report 24717400 (Version 1)
Quarter: 2024Q4

REPORT INFORMATION
  Report Type: Spontaneous
  Country: US (occurrence: None)
  Receive Date: 20241210
  Receipt Date: 20241210
  Transmission Date: 20250115
  Serious: Yes (Death)
  Sender: Public
  Company Number: None

PATIENT
  Age: 36 Year
  Sex: Female

DRUGS (11)
  1. TOBRAMYCIN [Suspect]
     Active Substance: TOBRAMYCIN\TOBRAMYCIN SULFATE
     Dosage: FREQUENCY : TWICE A DAY;?
     Route: 055
     Dates: start: 20230620, end: 20241121
  2. acetalcycstine [Concomitant]
  3. AMITRIPTYLINE [Concomitant]
     Active Substance: AMITRIPTYLINE
  4. APIDRA [Concomitant]
     Active Substance: INSULIN GLULISINE
  5. BETAMETHASONE [Concomitant]
     Active Substance: BETAMETHASONE
  6. BISOPROLOL [Concomitant]
     Active Substance: BISOPROLOL
  7. BREO ELLIPTA [Concomitant]
     Active Substance: FLUTICASONE FUROATE\VILANTEROL TRIFENATATE
  8. BUDESONIDE [Concomitant]
     Active Substance: BUDESONIDE
  9. BUPROPION [Concomitant]
     Active Substance: BUPROPION
  10. EPIPEN [Concomitant]
     Active Substance: EPINEPHRINE
  11. ETHAMBUTOL [Concomitant]
     Active Substance: ETHAMBUTOL HYDROCHLORIDE

REACTIONS (1)
  - Death [None]

NARRATIVE: CASE EVENT DATE: 20241121
